FAERS Safety Report 10100572 (Version 2)
Quarter: 2014Q2

REPORT INFORMATION
  Report Type: Report from Study
  Country: US (occurrence: US)
  Receive Date: 20140423
  Receipt Date: 20140605
  Transmission Date: 20141212
  Serious: Yes (Hospitalization, Other)
  Sender: FDA-Public Use
  Company Number: US-GLAXOSMITHKLINE-Z0022347A

PATIENT
  Age: 57 Year
  Sex: Male
  Weight: 97.1 kg

DRUGS (1)
  1. DABRAFENIB [Suspect]
     Indication: MALIGNANT MELANOMA
     Dosage: 150MG TWICE PER DAY
     Route: 048
     Dates: start: 20110809, end: 20140324

REACTIONS (1)
  - Adenocarcinoma pancreas [Not Recovered/Not Resolved]
